FAERS Safety Report 9277255 (Version 2)
Quarter: 2013Q4

REPORT INFORMATION
  Report Type: Spontaneous
  Country: FR (occurrence: FR)
  Receive Date: 20130508
  Receipt Date: 20131024
  Transmission Date: 20140711
  Serious: Yes (Hospitalization)
  Sender: FDA-Public Use
  Company Number: FR-ROCHE-1222012

PATIENT
  Age: 69 Year
  Sex: Male

DRUGS (17)
  1. AVASTIN [Suspect]
     Indication: COLON CANCER
     Dosage: (5 MG/KG THAT IS 255 MG).
     Route: 042
     Dates: start: 20121113, end: 20130313
  2. AVASTIN [Suspect]
     Route: 042
     Dates: start: 20121128
  3. AVASTIN [Suspect]
     Route: 042
     Dates: start: 20130131, end: 20130313
  4. ERBITUX [Concomitant]
  5. CAMPTO [Concomitant]
     Indication: COLON CANCER
     Dosage: 180 MG/M2 THAT IS  260 MG
     Route: 065
     Dates: start: 20121113
  6. CAMPTO [Concomitant]
     Route: 065
     Dates: start: 20121128
  7. CAMPTO [Concomitant]
     Dosage: 3 CYCLES180 MG/M2 THAT IS  260 MG AT DAY1
     Route: 065
     Dates: start: 20121219, end: 20130131
  8. CAMPTO [Concomitant]
     Route: 065
     Dates: start: 20130131, end: 20130313
  9. 5-FU [Concomitant]
     Indication: COLON CANCER
     Dosage: 400 MG/M2 THAT IS  580 MG THEN THEN 2400 MG/M2 THAT IS 3480 MG
     Route: 065
     Dates: start: 20121113
  10. 5-FU [Concomitant]
     Route: 065
     Dates: start: 20121128
  11. 5-FU [Concomitant]
     Route: 065
     Dates: start: 20130131, end: 20130313
  12. FOLINIC ACID [Concomitant]
     Dosage: DOSE:400 MG/M2 THAT IS  580 MG
     Route: 065
     Dates: start: 20121113
  13. FOLINIC ACID [Concomitant]
     Route: 065
     Dates: start: 20121128
  14. FOLINIC ACID [Concomitant]
     Route: 065
     Dates: start: 20130131, end: 20130313
  15. ELOXATINE [Concomitant]
  16. ARIXTRA [Concomitant]
     Route: 065
     Dates: start: 201212
  17. XELODA [Concomitant]
     Dosage: 1000 MG/M2 TWICE-DAILY IE. 1500 MG TWICE DAILY FROM DAY1 TO DAY14
     Route: 065
     Dates: start: 20121219, end: 20130131

REACTIONS (2)
  - Transient ischaemic attack [Recovered/Resolved]
  - Amaurosis [Recovered/Resolved]
